FAERS Safety Report 5915763-3 (Version None)
Quarter: 2008Q4

REPORT INFORMATION
  Report Type: 
  Country: None (occurrence: None)
  Receive Date: 20081010
  Receipt Date: 20081006
  Transmission Date: 20090506
  Serious: No
  Sender: FDA-Public Use
  Company Number: US-B.I. PHARMACEUTICALS,INC./RIDGEFIELD-2008-BP-15478BP

PATIENT
  Age: 83 Year
  Sex: Female

DRUGS (7)
  1. CATAPRES-TTS-1 [Suspect]
     Indication: HYPERTENSION
     Dosage: .3MG
     Route: 061
  2. POTASSIUM CHLORIDE [Concomitant]
  3. ADVAIR DISKUS 100/50 [Concomitant]
  4. TORSEMIDE [Concomitant]
  5. PROCRIT [Concomitant]
  6. ALLOPURINOL [Concomitant]
  7. CLONIDINE [Concomitant]
     Indication: HYPERTENSION

REACTIONS (1)
  - DRUG INEFFECTIVE [None]
